FAERS Safety Report 8475498-2 (Version None)
Quarter: 2012Q2

REPORT INFORMATION
  Report Type: 
  Country: None (occurrence: None)
  Receive Date: 20120628
  Receipt Date: 20120625
  Transmission Date: 20120825
  Serious: Yes (Hospitalization)
  Sender: FDA-Public Use
  Company Number: CH-ROCHE-1082414

PATIENT
  Sex: Male

DRUGS (7)
  1. PERINDOPRIL ERBUMINE [Concomitant]
  2. PRAVASTATIN [Concomitant]
  3. HUMALOG [Concomitant]
  4. LUCENTIS [Suspect]
     Indication: AGE-RELATED MACULAR DEGENERATION
     Route: 050
     Dates: start: 20120618
  5. ASPIRIN [Concomitant]
  6. LANTUS [Concomitant]
  7. METOPROLOL SUCCINATE [Concomitant]

REACTIONS (1)
  - MYOCARDIAL INFARCTION [None]
